FAERS Safety Report 17243498 (Version 1)
Quarter: 2020Q1

REPORT INFORMATION
  Report Type: Spontaneous
  Country: NL (occurrence: DE)
  Receive Date: 20200107
  Receipt Date: 20200107
  Transmission Date: 20200409
  Serious: Yes (Hospitalization, Other)
  Sender: FDA-Public Use
  Company Number: DE-FRESENIUS KABI-FK202000128

PATIENT
  Age: 64 Year
  Sex: Male

DRUGS (5)
  1. INFLIXIMAB [Suspect]
     Active Substance: INFLIXIMAB
     Indication: CROHN^S DISEASE
     Dosage: 400 MG
     Route: 042
     Dates: start: 20191031, end: 20191031
  2. CORTISONE [Concomitant]
     Active Substance: CORTISONE
     Indication: PRODUCT USED FOR UNKNOWN INDICATION
     Dosage: 5 MG, QD
     Route: 048
  3. DOXEPIN [Concomitant]
     Active Substance: DOXEPIN
     Indication: SLEEP DISORDER
     Dosage: UNK
     Route: 065
  4. RAMIPRIL. [Concomitant]
     Active Substance: RAMIPRIL
     Indication: HYPERTENSION
     Dosage: UNK
  5. SODIUM CHLORIDE (MANUFACTURER UNKNOWN) [Suspect]
     Active Substance: SODIUM CHLORIDE
     Indication: PRODUCT USED FOR UNKNOWN INDICATION
     Dosage: 250 ML, UNK
     Route: 065

REACTIONS (11)
  - Diarrhoea [Recovered/Resolved]
  - Haemoglobin decreased [Unknown]
  - Myalgia [Recovered/Resolved]
  - Cerebrovascular accident [Recovering/Resolving]
  - Tremor [Recovered/Resolved]
  - Platelet count decreased [Recovering/Resolving]
  - Paralysis [Recovered/Resolved]
  - White blood cell count decreased [Recovering/Resolving]
  - C-reactive protein increased [Recovering/Resolving]
  - Blood pressure increased [Unknown]
  - Monocyte count decreased [Recovering/Resolving]

NARRATIVE: CASE EVENT DATE: 2019
